FAERS Safety Report 4413436-X (Version None)
Quarter: 2004Q3

REPORT INFORMATION
  Report Type: 
  Country: None (occurrence: None)
  Receive Date: 20040728
  Receipt Date: 20040722
  Transmission Date: 20050211
  Serious: Yes (Hospitalization, Disabling)
  Sender: FDA-Public Use
  Company Number: STA-AE-04-MTX-165

PATIENT
  Age: 57 Year
  Sex: Female

DRUGS (12)
  1. METHOTREXATE [Suspect]
     Indication: RHEUMATOID ARTHRITIS
     Dosage: 2.5 MG 2X PER 1 WK, ORAL
     Route: 048
     Dates: start: 19971101, end: 20030407
  2. ENBREL [Suspect]
     Indication: RHEUMATOID ARTHRITIS
     Dosage: 25 MG 2X PER 1 WK, SC
     Route: 058
     Dates: start: 20030124, end: 20030407
  3. ENBREL [Suspect]
     Dosage: 25 MG 2X PER 1 WK, SC
     Route: 058
     Dates: start: 20030601
  4. PLAQUENIL [Concomitant]
  5. AZULFIDINE [Concomitant]
  6. LODINE [Concomitant]
  7. PREMPRO [Concomitant]
  8. HYZAAR [Concomitant]
  9. METOPROLOL (METOPROLOL) [Concomitant]
  10. ACETYLSALICYLIC ACID SRT [Concomitant]
  11. LIPITOR [Concomitant]
  12. FOSAMAX [Concomitant]

REACTIONS (3)
  - PNEUMONIA [None]
  - POST PROCEDURAL COMPLICATION [None]
  - SPLENIC CYST [None]
